FAERS Safety Report 13726841 (Version 1)
Quarter: 2017Q3

REPORT INFORMATION
  Report Type: Spontaneous
  Country: US (occurrence: US)
  Receive Date: 20170706
  Receipt Date: 20170706
  Transmission Date: 20171127
  Serious: No
  Sender: FDA-Public Use
  Company Number: US-PFIZER INC-2017291576

PATIENT
  Sex: Female

DRUGS (2)
  1. METHOTREXATE SODIUM. [Suspect]
     Active Substance: METHOTREXATE SODIUM
     Dosage: UNK
  2. XELJANZ [Suspect]
     Active Substance: TOFACITINIB CITRATE
     Dosage: 5 MG, UNK

REACTIONS (16)
  - Dry skin [Unknown]
  - Nail disorder [Unknown]
  - Vision blurred [Unknown]
  - Mobility decreased [Unknown]
  - Gait disturbance [Unknown]
  - Joint swelling [Unknown]
  - Weight increased [Unknown]
  - Joint range of motion decreased [Unknown]
  - Lacrimation increased [Unknown]
  - Increased tendency to bruise [Unknown]
  - Oedema [Unknown]
  - Joint effusion [Unknown]
  - Hypoaesthesia [Unknown]
  - Arthralgia [Unknown]
  - Dry mouth [Unknown]
  - Body height decreased [Unknown]
